FAERS Safety Report 18300719 (Version 1)
Quarter: 2020Q3

REPORT INFORMATION
  Report Type: Spontaneous
  Country: BE (occurrence: BE)
  Receive Date: 20200923
  Receipt Date: 20200923
  Transmission Date: 20201103
  Serious: Yes (Other)
  Sender: FDA-Public Use
  Company Number: NVSC2020BE252430

PATIENT
  Sex: Female

DRUGS (1)
  1. SUMATRIPTAN SANDOZ [Suspect]
     Active Substance: SUMATRIPTAN
     Indication: MIGRAINE
     Dosage: UNK
     Route: 065

REACTIONS (1)
  - Cerebrovascular accident [Unknown]
